FAERS Safety Report 13686815 (Version 2)
Quarter: 2017Q3

REPORT INFORMATION
  Report Type: Spontaneous
  Country: US (occurrence: US)
  Receive Date: 20170623
  Receipt Date: 20170707
  Transmission Date: 20171127
  Serious: Yes (Other)
  Sender: FDA-Public Use
  Company Number: US-ELI_LILLY_AND_COMPANY-US201706008570

PATIENT
  Age: 29 Year
  Sex: Female

DRUGS (1)
  1. HUMALOG [Suspect]
     Active Substance: INSULIN LISPRO
     Indication: TYPE 1 DIABETES MELLITUS
     Dosage: 10 U, UNKNOWN
     Dates: start: 2006

REACTIONS (8)
  - Thirst [Unknown]
  - Malaise [Unknown]
  - Blood ketone body [Unknown]
  - Blood glucose increased [Unknown]
  - Pollakiuria [Unknown]
  - Fatigue [Unknown]
  - Drug ineffective [Unknown]
  - Hyperglycaemia [Unknown]

NARRATIVE: CASE EVENT DATE: 20170618
